FAERS Safety Report 14175383 (Version 1)
Quarter: 2017Q4

REPORT INFORMATION
  Report Type: Spontaneous
  Country: CA (occurrence: CA)
  Receive Date: 20171109
  Receipt Date: 20171109
  Transmission Date: 20180321
  Serious: Yes (Hospitalization, Other)
  Sender: FDA-Public Use
  Company Number: CA-ABBVIE-17K-028-2155518-00

PATIENT
  Age: 70 Year
  Sex: Female

DRUGS (2)
  1. HUMIRA [Suspect]
     Active Substance: ADALIMUMAB
     Indication: PRODUCT USED FOR UNKNOWN INDICATION
     Route: 058
     Dates: end: 2015
  2. ACTEMRA [Suspect]
     Active Substance: TOCILIZUMAB
     Indication: PRODUCT USED FOR UNKNOWN INDICATION
     Route: 065
     Dates: start: 201704, end: 20171012

REACTIONS (7)
  - Drug ineffective [Unknown]
  - Arthralgia [Not Recovered/Not Resolved]
  - Oedema peripheral [Unknown]
  - Herpes zoster [Unknown]
  - Pulmonary oedema [Not Recovered/Not Resolved]
  - Drug effect decreased [Unknown]
  - Mobility decreased [Not Recovered/Not Resolved]

NARRATIVE: CASE EVENT DATE: 2015
